FAERS Safety Report 19361207 (Version 3)
Quarter: 2021Q2

REPORT INFORMATION
  Report Type: Spontaneous
  Country: US (occurrence: US)
  Receive Date: 20210601
  Receipt Date: 20210616
  Transmission Date: 20210717
  Serious: Yes (Other)
  Sender: FDA-Public Use
  Company Number: US-PFIZER INC-2021571744

PATIENT
  Sex: Male

DRUGS (7)
  1. DOXORUBICIN HCL [Suspect]
     Active Substance: DOXORUBICIN HYDROCHLORIDE
     Indication: RHABDOID TUMOUR
     Dosage: UNK, CYCLIC (15 CYCLES)
  2. CYCLOPHOSPHAMIDE. [Suspect]
     Active Substance: CYCLOPHOSPHAMIDE
     Indication: RHABDOID TUMOUR
     Dosage: UNK, CYCLIC (15 CYCLES)
  3. ETOPOSIDE. [Suspect]
     Active Substance: ETOPOSIDE
     Indication: RHABDOID TUMOUR
     Dosage: UNK, CYCLIC (15 CYCLES)
  4. PREDNISONE. [Suspect]
     Active Substance: PREDNISONE
     Indication: RHABDOID TUMOUR
     Dosage: UNK, CYCLIC (15 CYCLES)
  5. ACTINOMYCIN D [Suspect]
     Active Substance: DACTINOMYCIN
     Indication: RHABDOID TUMOUR
     Dosage: UNK, CYCLIC (15 CYCLES)
  6. CISPLATIN. [Suspect]
     Active Substance: CISPLATIN
     Indication: RHABDOID TUMOUR
     Dosage: UNK, CYCLIC (15 CYCLES)
  7. ONCOVIN [Suspect]
     Active Substance: VINCRISTINE SULFATE
     Indication: RHABDOID TUMOUR
     Dosage: UNK, CYCLIC (15 CYCLES)

REACTIONS (3)
  - Neutropenia [Unknown]
  - Infantile vomiting [Unknown]
  - Failure to thrive [Unknown]
